FAERS Safety Report 14336198 (Version 1)
Quarter: 2017Q4

REPORT INFORMATION
  Report Type: Spontaneous
  Country: ES (occurrence: ES)
  Receive Date: 20171229
  Receipt Date: 20171229
  Transmission Date: 20180321
  Serious: Yes (Hospitalization)
  Sender: FDA-Public Use
  Company Number: ES-HORIZON-BUP-0094-2017

PATIENT
  Age: 6 Year
  Sex: Male

DRUGS (1)
  1. AMMONAPS [Suspect]
     Active Substance: SODIUM PHENYLBUTYRATE
     Indication: HYPERAMMONAEMIA
     Dosage: 3600 MG (1200 MG, 3 IN 1 D)
     Route: 048
     Dates: start: 20171112, end: 20171115

REACTIONS (4)
  - Hypokalaemia [Recovered/Resolved]
  - Drug administration error [Recovered/Resolved]
  - Respiratory alkalosis [Recovered/Resolved]
  - Hypophosphataemia [Recovered/Resolved]

NARRATIVE: CASE EVENT DATE: 20171112
